FAERS Safety Report 12741194 (Version 7)
Quarter: 2019Q2

REPORT INFORMATION
  Report Type: Spontaneous
  Country: JP (occurrence: JP)
  Receive Date: 20160914
  Receipt Date: 20190614
  Transmission Date: 20190711
  Serious: Yes (Other)
  Sender: FDA-Public Use
  Company Number: PHJP2016JP026083

PATIENT
  Age: 32 Year
  Sex: Female
  Weight: 46 kg

DRUGS (4)
  1. RIVOTRIL [Concomitant]
     Active Substance: CLONAZEPAM
     Indication: MULTIPLE SCLEROSIS
     Dosage: 0.5 MG, QD
     Route: 048
     Dates: start: 20120903
  2. METHYCOBAL [Concomitant]
     Active Substance: METHYLCOBALAMIN
     Indication: MULTIPLE SCLEROSIS
     Dosage: 0.5 MG, TID
     Route: 048
     Dates: start: 20120319
  3. URSO [Concomitant]
     Active Substance: URSODIOL
     Indication: PROPHYLAXIS
     Dosage: 100 MG, TID
     Route: 048
     Dates: start: 20120903
  4. GILENYA [Suspect]
     Active Substance: FINGOLIMOD HYDROCHLORIDE
     Indication: RELAPSING-REMITTING MULTIPLE SCLEROSIS
     Dosage: 0.5 MG, QD
     Route: 048
     Dates: start: 20141015, end: 20170212

REACTIONS (11)
  - Tumefactive multiple sclerosis [Recovered/Resolved]
  - Nuclear magnetic resonance imaging abnormal [Unknown]
  - Rebound effect [Recovered/Resolved]
  - JC polyomavirus test positive [Unknown]
  - Multiple sclerosis relapse [Recovered/Resolved]
  - Dysstasia [Unknown]
  - Malaise [Unknown]
  - Gait disturbance [Unknown]
  - Sensory disturbance [Unknown]
  - Lymphopenia [Recovered/Resolved]
  - Central nervous system lesion [Not Recovered/Not Resolved]

NARRATIVE: CASE EVENT DATE: 20150201
